FAERS Safety Report 6184211-3 (Version None)
Quarter: 2009Q2

REPORT INFORMATION
  Report Type: 
  Country: None (occurrence: None)
  Receive Date: 20090508
  Receipt Date: 20090501
  Transmission Date: 20091009
  Serious: Yes (Hospitalization, Other)
  Sender: FDA-Public Use
  Company Number: US-ELI_LILLY_AND_COMPANY-US200905000129

PATIENT
  Sex: Female

DRUGS (6)
  1. FORTEO [Suspect]
     Dosage: 20 UG, DAILY (1/D)
     Dates: start: 20071101
  2. CALCIUM W/VITAMIN D NOS [Concomitant]
  3. METHOTREXATE [Concomitant]
  4. PREDNISONE [Concomitant]
  5. LORTAB [Concomitant]
  6. FLEXERIL [Concomitant]

REACTIONS (2)
  - MUSCLE SPASMS [None]
  - SHOULDER ARTHROPLASTY [None]
